FAERS Safety Report 19987983 (Version 2)
Quarter: 2021Q4

REPORT INFORMATION
  Report Type: Spontaneous
  Country: JP (occurrence: JP)
  Receive Date: 20211023
  Receipt Date: 20211111
  Transmission Date: 20220303
  Serious: Yes (Other)
  Sender: FDA-Public Use
  Company Number: JP-TAKEDA-2021TJP107191

PATIENT
  Age: 55 Year
  Sex: Female

DRUGS (1)
  1. ALUNBRIG [Suspect]
     Active Substance: BRIGATINIB
     Indication: Lung adenocarcinoma stage IV
     Dosage: 180 MILLIGRAM
     Route: 048

REACTIONS (2)
  - Metastases to meninges [Recovering/Resolving]
  - Drug resistance [Unknown]
